FAERS Safety Report 7671755-8 (Version None)
Quarter: 2011Q3

REPORT INFORMATION
  Report Type: 
  Country: None (occurrence: None)
  Receive Date: 20110809
  Receipt Date: 20110729
  Transmission Date: 20111222
  Serious: Yes (Death, Hospitalization)
  Sender: FDA-Public Use
  Company Number: GR-GILEAD-E2B_00001424

PATIENT
  Age: 77 Year
  Sex: Male

DRUGS (3)
  1. AMBRISENTAN [Suspect]
     Indication: PULMONARY HYPERTENSION
     Route: 065
     Dates: start: 20110301, end: 20110712
  2. AMBRISENTAN [Suspect]
     Route: 065
     Dates: start: 20110712
  3. CALCIUM ANTAGONIST [Concomitant]
     Indication: PRODUCT USED FOR UNKNOWN INDICATION
     Route: 065

REACTIONS (2)
  - DRUG INEFFECTIVE [None]
  - CARDIAC FAILURE [None]
